FAERS Safety Report 11269644 (Version 1)
Quarter: 2015Q3

REPORT INFORMATION
  Report Type: Spontaneous
  Country: US (occurrence: None)
  Receive Date: 20150713
  Receipt Date: 20150713
  Transmission Date: 20151125
  Serious: Yes (Hospitalization)
  Sender: FDA-Public Use
  Company Number: None

PATIENT
  Age: 59 Year
  Sex: Female
  Weight: 76.8 kg

DRUGS (2)
  1. RIBAVIRIN. [Suspect]
     Active Substance: RIBAVIRIN
     Indication: HEPATITIS C
     Route: 048
     Dates: start: 20150625, end: 20150706
  2. VIEKIRA PAK [Suspect]
     Active Substance: DASABUVIR\OMBITASVIR\PARITAPREVIR\RITONAVIR
     Indication: HEPATITIS C
     Dosage: 12.5-75-50 + 250 MG ORALLY
     Route: 048
     Dates: start: 20150629, end: 20150706

REACTIONS (5)
  - Myalgia [None]
  - Dermatitis bullous [None]
  - Rash [None]
  - Stevens-Johnson syndrome [None]
  - Fatigue [None]

NARRATIVE: CASE EVENT DATE: 20150706
